FAERS Safety Report 18296892 (Version 2)
Quarter: 2020Q3

REPORT INFORMATION
  Report Type: Spontaneous
  Country: US (occurrence: US)
  Receive Date: 20200922
  Receipt Date: 20200924
  Transmission Date: 20201103
  Serious: Yes (Hospitalization)
  Sender: FDA-Public Use
  Company Number: US-PFIZER INC-2020344942

PATIENT
  Age: 76 Year
  Sex: Male

DRUGS (4)
  1. MEKTOVI [Suspect]
     Active Substance: BINIMETINIB
     Indication: MALIGNANT MELANOMA
     Dosage: 45 MG, 2X/DAY (45MG ONCE EVERY 12 HOURS)
     Dates: start: 20200811
  2. MEKTOVI [Suspect]
     Active Substance: BINIMETINIB
     Dosage: 4 DF (MEKTOVI 2 TABLETS AT MORNING AND 2 AT NIGHT)
  3. BRAFTOVI [Suspect]
     Active Substance: ENCORAFENIB
     Indication: MALIGNANT MELANOMA
     Dosage: 450 MG, DAILY
     Dates: start: 20200811
  4. BRAFTOVI [Suspect]
     Active Substance: ENCORAFENIB
     Dosage: 4 DF (BRAFTOVI 4 TABLETS AT NIGHT)

REACTIONS (6)
  - Electrocardiogram abnormal [Unknown]
  - Rash [Not Recovered/Not Resolved]
  - Condition aggravated [Not Recovered/Not Resolved]
  - Nausea [Unknown]
  - Vomiting [Unknown]
  - Abdominal pain upper [Unknown]
